FAERS Safety Report 7374479-X (Version None)
Quarter: 2011Q1

REPORT INFORMATION
  Report Type: 
  Country: None (occurrence: None)
  Receive Date: 20110325
  Receipt Date: 20110105
  Transmission Date: 20110831
  Serious: No
  Sender: FDA-Public Use
  Company Number: US-MYLANLABS-2011S1000611

PATIENT
  Age: 84 Year
  Sex: Female
  Weight: 62.6 kg

DRUGS (1)
  1. FENTANYL-100 [Suspect]
     Indication: MUSCULOSKELETAL PAIN
     Dosage: CHANGED Q 72 HOURS.
     Route: 062
     Dates: start: 20101101

REACTIONS (3)
  - DRUG INEFFECTIVE [None]
  - MUSCULOSKELETAL PAIN [None]
  - PAIN IN EXTREMITY [None]
